FAERS Safety Report 9460006 (Version 1)
Quarter: 2013Q3

REPORT INFORMATION
  Report Type: Spontaneous
  Country: US (occurrence: None)
  Receive Date: 20130813
  Receipt Date: 20130813
  Transmission Date: 20140515
  Serious: No
  Sender: FDA-Public Use
  Company Number: None

PATIENT
  Age: 70 Year
  Sex: Male
  Weight: 86.18 kg

DRUGS (5)
  1. LUMIGAN 0.01% [Suspect]
     Indication: GLAUCOMA
     Dosage: 2.5 ML. ONE EACH EYE BEDTIME  BY DROP (OCULAR)
     Route: 031
     Dates: start: 20130725, end: 20130726
  2. TERAZOZIN [Concomitant]
  3. OMEPRAZOLE [Concomitant]
  4. PRAVASTATIN [Suspect]
  5. VITAMIN B 12 [Concomitant]

REACTIONS (5)
  - Ocular hyperaemia [None]
  - Eye pain [None]
  - Vision blurred [None]
  - Hypersensitivity [None]
  - Product substitution issue [None]
